FAERS Safety Report 15182812 (Version 1)
Quarter: 2018Q3

REPORT INFORMATION
  Report Type: Spontaneous
  Country: US (occurrence: US)
  Receive Date: 20180723
  Receipt Date: 20180723
  Transmission Date: 20181010
  Serious: Yes (Other)
  Sender: FDA-Public Use
  Company Number: US-PFIZER INC-2018289643

PATIENT
  Age: 64 Year
  Sex: Female

DRUGS (1)
  1. METHIMAZOLE. [Suspect]
     Active Substance: METHIMAZOLE
     Indication: BASEDOW^S DISEASE
     Dosage: UNK

REACTIONS (3)
  - Hypersensitivity vasculitis [Recovered/Resolved]
  - Pleural effusion [Recovered/Resolved]
  - Purpura [Recovered/Resolved]
